FAERS Safety Report 7599718-1 (Version None)
Quarter: 2011Q2

REPORT INFORMATION
  Report Type: 
  Country: None (occurrence: None)
  Receive Date: 20110629
  Receipt Date: 20110610
  Transmission Date: 20111010
  Serious: Yes (Other)
  Sender: FDA-Public Use
  Company Number: 2011SE33906

PATIENT
  Age: 39 Year
  Sex: Female

DRUGS (1)
  1. FOSCAVIR [Suspect]
     Route: 041

REACTIONS (1)
  - PNEUMONIA [None]
